FAERS Safety Report 12237189 (Version 1)
Quarter: 2016Q2

REPORT INFORMATION
  Report Type: Spontaneous
  Country: US (occurrence: None)
  Receive Date: 20160404
  Receipt Date: 20160404
  Transmission Date: 20160815
  Serious: Yes (Hospitalization, Other)
  Sender: FDA-Public Use
  Company Number: None

PATIENT
  Age: 31 Year
  Sex: Female
  Weight: 81.65 kg

DRUGS (1)
  1. PARAGARD T 380A [Suspect]
     Active Substance: COPPER

REACTIONS (17)
  - Impaired work ability [None]
  - Eating disorder [None]
  - Mental disorder [None]
  - Fatigue [None]
  - Affect lability [None]
  - Crying [None]
  - Weight decreased [None]
  - Emotional disorder [None]
  - Depression [None]
  - Intentional self-injury [None]
  - Pain [None]
  - Suicidal ideation [None]
  - Mood swings [None]
  - Memory impairment [None]
  - Muscle spasms [None]
  - Anxiety [None]
  - Medical device discomfort [None]

NARRATIVE: CASE EVENT DATE: 20110510
